FAERS Safety Report 10022351 (Version 2)
Quarter: 2014Q2

REPORT INFORMATION
  Report Type: Spontaneous
  Country: US (occurrence: None)
  Receive Date: 20131219
  Receipt Date: 20140401
  Transmission Date: 20141212
  Serious: Yes (Hospitalization, Other)
  Sender: FDA-Public Use
  Company Number: ADR-2013-02071

PATIENT
  Age: 36 Year
  Sex: Male

DRUGS (2)
  1. BACLOFEN [Suspect]
     Indication: CANCER PAIN
     Dosage: 74.95 MCG/DAY
  2. DILAUDID [Suspect]
     Dosage: 0.9993 MG/DAY

REACTIONS (4)
  - Hypoaesthesia [None]
  - Incontinence [None]
  - Device dislocation [None]
  - Toxicity to various agents [None]
